FAERS Safety Report 16377278 (Version 2)
Quarter: 2019Q2

REPORT INFORMATION
  Report Type: Report from Study
  Country: CO (occurrence: CO)
  Receive Date: 20190531
  Receipt Date: 20190604
  Transmission Date: 20190711
  Serious: Yes (Other)
  Sender: FDA-Public Use
  Company Number: PHHY2019CO122448

PATIENT
  Age: 7 Year
  Sex: Male
  Weight: 26 kg

DRUGS (1)
  1. JADENU [Suspect]
     Active Substance: DEFERASIROX
     Indication: SICKLE CELL DISEASE
     Dosage: 360 MG, QD
     Route: 048
     Dates: start: 20190227

REACTIONS (4)
  - Somnambulism [Unknown]
  - Delirium [Unknown]
  - Aggression [Unknown]
  - Incoherent [Unknown]

NARRATIVE: CASE EVENT DATE: 20190227
